FAERS Safety Report 4829051-X (Version None)
Quarter: 2005Q4

REPORT INFORMATION
  Report Type: 
  Country: None (occurrence: None)
  Receive Date: 20051014
  Receipt Date: 20050822
  Transmission Date: 20060501
  Serious: No
  Sender: FDA-Public Use
  Company Number: 2005SP002443

PATIENT
  Age: 54 Year
  Sex: Female
  Weight: 50.8029 kg

DRUGS (4)
  1. LUNESTA [Suspect]
     Indication: INSOMNIA
     Dosage: 3 MG;HS;ORAL
     Route: 048
     Dates: start: 20050820, end: 20050821
  2. AMBIEN [Concomitant]
  3. LOTREL [Concomitant]
  4. ELAVIL [Concomitant]

REACTIONS (5)
  - FALL [None]
  - HANGOVER [None]
  - HEADACHE [None]
  - INJURY [None]
  - SOMNOLENCE [None]
